FAERS Safety Report 7756098-6 (Version None)
Quarter: 2011Q3

REPORT INFORMATION
  Report Type: 
  Country: None (occurrence: None)
  Receive Date: 20110914
  Receipt Date: 20110901
  Transmission Date: 20111222
  Serious: Yes (Other)
  Sender: FDA-Public Use
  Company Number: ALK_01996_2011

PATIENT
  Age: 30 Year
  Sex: Female

DRUGS (4)
  1. ESCITALOPRAM [Concomitant]
  2. VIVITROL [Suspect]
     Indication: ALCOHOLISM
     Dosage: INTRAMUSCULAR
     Route: 030
  3. ORAL CONTRACEPTIVE NOS [Concomitant]
  4. HYDROXYZINE [Concomitant]

REACTIONS (6)
  - ABSCESS [None]
  - OEDEMA [None]
  - ERYTHEMA [None]
  - INJECTION SITE URTICARIA [None]
  - HAEMATOMA [None]
  - SOFT TISSUE NECROSIS [None]
